FAERS Safety Report 19518940 (Version 1)
Quarter: 2021Q3

REPORT INFORMATION
  Report Type: Spontaneous
  Country: US (occurrence: US)
  Receive Date: 20210711
  Receipt Date: 20210711
  Transmission Date: 20211014
  Serious: Yes (Life-Threatening, Hospitalization)
  Sender: FDA-Public Use
  Company Number: None

PATIENT
  Age: 83 Year
  Sex: Male
  Weight: 76.5 kg

DRUGS (1)
  1. HISTAMINE DIHYDROCHLORIDE. [Suspect]
     Active Substance: HISTAMINE DIHYDROCHLORIDE
     Indication: PAIN

REACTIONS (2)
  - Hypotension [None]
  - Myocardial infarction [None]

NARRATIVE: CASE EVENT DATE: 20210616
